FAERS Safety Report 8425507-1 (Version None)
Quarter: 2012Q2

REPORT INFORMATION
  Report Type: 
  Country: None (occurrence: None)
  Receive Date: 20120605
  Receipt Date: 20120605
  Transmission Date: 20120825
  Serious: Yes (Other)
  Sender: FDA-Public Use
  Company Number: None

PATIENT
  Age: 42 Year
  Sex: Male

DRUGS (3)
  1. ETANERCEPT [Concomitant]
  2. HUMIRA [Suspect]
     Indication: PSORIASIS
     Dosage: 40MG Q14DAYS SQ
     Route: 058
     Dates: start: 20120401, end: 20120409
  3. HUMIRA [Suspect]
     Indication: PSORIATIC ARTHROPATHY
     Dosage: 40MG Q14DAYS SQ
     Route: 058
     Dates: start: 20120401, end: 20120409

REACTIONS (3)
  - HEADACHE [None]
  - VISUAL IMPAIRMENT [None]
  - DEMYELINATION [None]
